FAERS Safety Report 24098433 (Version 1)
Quarter: 2024Q3

REPORT INFORMATION
  Report Type: Spontaneous
  Country: IN (occurrence: IN)
  Receive Date: 20240716
  Receipt Date: 20240716
  Transmission Date: 20241017
  Serious: Yes (Death)
  Sender: PFIZER
  Company Number: IN-PFIZER INC-2019313543

PATIENT
  Age: 67 Year
  Sex: Female

DRUGS (4)
  1. PALBOCICLIB [Suspect]
     Active Substance: PALBOCICLIB
     Indication: Breast cancer metastatic
     Dosage: 125 MG, 1X/DAY 21 DAYS + 7 DAYS OFF
     Route: 048
     Dates: start: 20181010, end: 202102
  2. PALBOCICLIB [Suspect]
     Active Substance: PALBOCICLIB
     Dosage: UNK
     Dates: end: 202212
  3. FEMARA [Concomitant]
     Active Substance: LETROZOLE
     Dosage: 2.5 MG, 1X/DAY
  4. ZOLEDRONIC ACID [Concomitant]
     Active Substance: ZOLEDRONIC ACID

REACTIONS (4)
  - Death [Fatal]
  - Pain [Unknown]
  - Arthropathy [Recovered/Resolved]
  - Arthralgia [Unknown]
